FAERS Safety Report 7156455-5 (Version None)
Quarter: 2010Q4

REPORT INFORMATION
  Report Type: 
  Country: None (occurrence: None)
  Receive Date: 20101214
  Receipt Date: 20091113
  Transmission Date: 20110411
  Serious: No
  Sender: FDA-Public Use
  Company Number: US-ASTRAZENECA-2009SE26406

PATIENT
  Sex: Female
  Weight: 76.2 kg

DRUGS (7)
  1. CRESTOR [Suspect]
     Route: 048
     Dates: start: 20070101
  2. LEVOXYL [Concomitant]
     Indication: THYROID DISORDER
  3. NADOLOL [Concomitant]
     Indication: CARDIAC DISORDER
  4. NITROGLYCERIN [Concomitant]
  5. FISH OIL [Concomitant]
  6. ASPIRIN [Concomitant]
  7. MULTI-VITAMIN [Concomitant]

REACTIONS (2)
  - COELIAC DISEASE [None]
  - HEPATIC ENZYME INCREASED [None]
